FAERS Safety Report 8953916 (Version 1)
Quarter: 2012Q4

REPORT INFORMATION
  Report Type: 
  Country: CA (occurrence: CA)
  Receive Date: 20121206
  Receipt Date: 20121206
  Transmission Date: 20130627
  Serious: Yes (Other)
  Sender: FDA-Public Use
  Company Number: CA-009507513-1212CAN002277

PATIENT
  Sex: Male

DRUGS (2)
  1. PEGETRON [Suspect]
     Indication: HEPATITIS C
     Dosage: UNK
     Route: 058
     Dates: start: 2011, end: 20120417
  2. VICTRELIS [Suspect]
     Indication: HEPATITIS C
     Dosage: UNK
     Route: 048
     Dates: start: 2011, end: 20120417

REACTIONS (5)
  - Pancreatic carcinoma [Unknown]
  - Blood test abnormal [Unknown]
  - Abdominal pain [Unknown]
  - Weight fluctuation [Unknown]
  - Helicobacter infection [Unknown]
